FAERS Safety Report 12483148 (Version 1)
Quarter: 2016Q2

REPORT INFORMATION
  Report Type: Report from Study
  Country: FR (occurrence: FR)
  Receive Date: 20160620
  Receipt Date: 20160620
  Transmission Date: 20160815
  Serious: Yes (Hospitalization, Other)
  Sender: FDA-Public Use
  Company Number: FR-TEVA-669777ACC

PATIENT
  Age: 64 Year
  Sex: Male

DRUGS (6)
  1. VELCADE [Suspect]
     Active Substance: BORTEZOMIB
     Indication: PLASMA CELL MYELOMA
     Dosage: (4 COURSES)
     Route: 065
  2. DARATUMUMAB [Suspect]
     Active Substance: DARATUMUMAB
     Indication: PLASMA CELL MYELOMA
     Route: 058
     Dates: start: 20160523, end: 20160523
  3. BENDAMUSTINE HYDROCHLORIDE. [Suspect]
     Active Substance: BENDAMUSTINE HYDROCHLORIDE
     Indication: PLASMA CELL MYELOMA
     Route: 042
  4. ABT (VENETOCLAX) [Suspect]
     Active Substance: VENETOCLAX
     Indication: PLASMA CELL MYELOMA
     Route: 065
  5. DEXAMETHASONE. [Suspect]
     Active Substance: DEXAMETHASONE
     Indication: PLASMA CELL MYELOMA
     Dosage: (4 COURSES)
     Route: 065
  6. REVLIMID [Suspect]
     Active Substance: LENALIDOMIDE
     Indication: PLASMA CELL MYELOMA
     Dosage: (4 COURSES)
     Route: 065

REACTIONS (2)
  - Pyrexia [Recovered/Resolved]
  - Plasma cell myeloma recurrent [Unknown]

NARRATIVE: CASE EVENT DATE: 201407
